FAERS Safety Report 12157621 (Version 1)
Quarter: 2016Q1

REPORT INFORMATION
  Report Type: Report from Study
  Country: US (occurrence: US)
  Receive Date: 20160308
  Receipt Date: 20160308
  Transmission Date: 20160526
  Serious: Yes (Congenital Anomaly, Other)
  Sender: FDA-Public Use
  Company Number: US-ACCORD-038331

PATIENT
  Sex: Female
  Weight: 1.25 kg

DRUGS (1)
  1. METHOTREXATE [Suspect]
     Active Substance: METHOTREXATE
     Indication: ABORTION INDUCED

REACTIONS (6)
  - Disorder of sex development [Unknown]
  - Foetal exposure during pregnancy [Recovered/Resolved]
  - Craniosynostosis [Recovered/Resolved]
  - Brachydactyly [Unknown]
  - Labia enlarged [Unknown]
  - Micrognathia [Unknown]
